FAERS Safety Report 10067035 (Version 3)
Quarter: 2014Q2

REPORT INFORMATION
  Report Type: Report from Study
  Country: DE (occurrence: DE)
  Receive Date: 20140409
  Receipt Date: 20140505
  Transmission Date: 20141212
  Serious: Yes (Hospitalization)
  Sender: FDA-Public Use
  Company Number: DE-BIOGENIDEC-2014BI029049

PATIENT
  Age: 34 Year
  Sex: Female

DRUGS (2)
  1. TYSABRI [Suspect]
     Indication: RELAPSING-REMITTING MULTIPLE SCLEROSIS
     Route: 042
     Dates: start: 20120412, end: 20131105
  2. PROPRANOLOL [Concomitant]
     Indication: BLADDER DISORDER
     Route: 048
     Dates: start: 20120924

REACTIONS (1)
  - Secondary progressive multiple sclerosis [Recovered/Resolved]
